FAERS Safety Report 21866378 (Version 2)
Quarter: 2023Q2

REPORT INFORMATION
  Report Type: Report from Study
  Country: US (occurrence: US)
  Receive Date: 20230116
  Receipt Date: 20230418
  Transmission Date: 20230721
  Serious: No
  Sender: FDA-Public Use
  Company Number: US-002147023-NVSC2023US007454

PATIENT
  Age: 60 Year
  Sex: Female

DRUGS (1)
  1. COSENTYX [Suspect]
     Active Substance: SECUKINUMAB
     Indication: Ankylosing spondylitis
     Dosage: 150 MG
     Route: 065

REACTIONS (17)
  - Anxiety [Unknown]
  - Fungal infection [Unknown]
  - Depressed mood [Unknown]
  - Fatigue [Unknown]
  - Sinus congestion [Unknown]
  - Pruritus [Unknown]
  - Abdominal discomfort [Unknown]
  - Eye pruritus [Unknown]
  - Stress [Unknown]
  - Pain [Unknown]
  - Candida infection [Recovering/Resolving]
  - Ear swelling [Unknown]
  - Injection site bruising [Unknown]
  - Injection site pain [Unknown]
  - Diarrhoea [Unknown]
  - Nasopharyngitis [Unknown]
  - Conjunctivitis [Unknown]
